FAERS Safety Report 7230647-9 (Version None)
Quarter: 2011Q1

REPORT INFORMATION
  Report Type: 
  Country: None (occurrence: None)
  Receive Date: 20110118
  Receipt Date: 20110114
  Transmission Date: 20110831
  Serious: Yes (Life-Threatening, Hospitalization, Disabling, Other)
  Sender: FDA-Public Use
  Company Number: PHFR2010IE05190

PATIENT
  Sex: Female
  Weight: 95.25 kg

DRUGS (13)
  1. CLOZARIL [Suspect]
     Indication: SCHIZOPHRENIA
     Dosage: 200 MG IN EVENING
     Route: 048
     Dates: start: 19991013, end: 20101104
  2. EZETIMIBE W/SIMVASTATIN [Concomitant]
     Dosage: UNK
     Route: 065
  3. INEGY [Concomitant]
     Dosage: 1 DF, QD
     Route: 048
  4. GALFER [Concomitant]
     Indication: ANAEMIA
     Dosage: 1 DF, QD
     Route: 048
  5. DOVONEX [Concomitant]
     Indication: PSORIASIS
     Dosage: 1 DF, PRN
     Route: 061
  6. LACTULOSE [Concomitant]
     Indication: CONSTIPATION
     Dosage: 10 ML, QD
     Route: 048
  7. MYCOSTATIN [Concomitant]
     Indication: CANDIDIASIS
     Dosage: 1 ML, QD
  8. CLOZARIL [Suspect]
     Dosage: 125 MG, QD
     Route: 048
     Dates: start: 20101224
  9. PAROXETINE HCL [Concomitant]
  10. ANTIHYPERTENSIVES [Concomitant]
  11. SENNOCOL [Concomitant]
     Indication: CONSTIPATION
     Dosage: 2 DF, QD
     Route: 048
  12. LORAZEPAM [Concomitant]
     Indication: AGITATION
     Dosage: 1 MG, PRN
  13. FOLIC ACID [Concomitant]
     Indication: BLOOD FOLATE DECREASED
     Dosage: 5 MG, QD
     Route: 048

REACTIONS (9)
  - NEUROLEPTIC MALIGNANT SYNDROME [None]
  - CONFUSIONAL STATE [None]
  - BLOOD CREATINE PHOSPHOKINASE INCREASED [None]
  - CONTUSION [None]
  - MENORRHAGIA [None]
  - IDIOPATHIC THROMBOCYTOPENIC PURPURA [None]
  - C-REACTIVE PROTEIN INCREASED [None]
  - THROMBOCYTOPENIA [None]
  - MENTAL IMPAIRMENT [None]
